FAERS Safety Report 13441925 (Version 1)
Quarter: 2017Q2

REPORT INFORMATION
  Report Type: Spontaneous
  Country: GB (occurrence: GB)
  Receive Date: 20170413
  Receipt Date: 20170413
  Transmission Date: 20170830
  Serious: Yes (Other)
  Sender: FDA-Public Use
  Company Number: GB-ROCHE-1918183

PATIENT
  Age: 31 Year
  Sex: Female

DRUGS (6)
  1. HERCEPTIN [Suspect]
     Active Substance: TRASTUZUMAB
     Indication: PRODUCT USED FOR UNKNOWN INDICATION
     Route: 065
  2. TAMOXIFEN [Concomitant]
     Active Substance: TAMOXIFEN
     Route: 065
     Dates: start: 201505
  3. EPIRUBICIN [Concomitant]
     Active Substance: EPIRUBICIN
     Dosage: 6 CYCLES
     Route: 065
  4. CYCLOPHOSPHAMIDE. [Concomitant]
     Active Substance: CYCLOPHOSPHAMIDE
     Dosage: 6 CYCLES
     Route: 065
  5. PACLITAXEL. [Concomitant]
     Active Substance: PACLITAXEL
     Dosage: 33/40, X 3 DOSES
     Route: 065
  6. 5-FLUOROURACIL [Concomitant]
     Active Substance: FLUOROURACIL
     Dosage: 6 CYCLES
     Route: 065

REACTIONS (6)
  - Maternal exposure during pregnancy [Unknown]
  - Spinal fracture [Unknown]
  - Erythema [Unknown]
  - Metastases to bone [Unknown]
  - Breast mass [Unknown]
  - Malignant pleural effusion [Unknown]

NARRATIVE: CASE EVENT DATE: 201701
